FAERS Safety Report 14403406 (Version 5)
Quarter: 2018Q1

REPORT INFORMATION
  Report Type: Spontaneous
  Country: DE (occurrence: DE)
  Receive Date: 20180117
  Receipt Date: 20180228
  Transmission Date: 20180509
  Serious: Yes (Hospitalization, Other)
  Sender: FDA-Public Use
  Company Number: DE-PFIZER INC-2018011025

PATIENT
  Age: 54 Year
  Sex: Female
  Weight: 59 kg

DRUGS (9)
  1. IBRANCE [Suspect]
     Active Substance: PALBOCICLIB
     Dosage: 100 MG, CYCLIC (2 CYCLES)
     Route: 048
     Dates: start: 20171016, end: 20171106
  2. ARCOXIA [Suspect]
     Active Substance: ETORICOXIB
     Indication: PAIN
     Dosage: 60 MG, ONCE DAILY
     Route: 048
     Dates: start: 20171101, end: 20171219
  3. LETROZOL [Concomitant]
     Active Substance: LETROZOLE
     Dosage: UNK
     Route: 048
  4. IBRANCE [Suspect]
     Active Substance: PALBOCICLIB
     Dosage: 100 MG, UNK
     Route: 048
     Dates: start: 20171106
  5. CALCIUM [Concomitant]
     Active Substance: CALCIUM
     Dosage: ADMINISTERED AS SODA
     Route: 048
  6. IBRANCE [Suspect]
     Active Substance: PALBOCICLIB
     Indication: BREAST CANCER METASTATIC
     Dosage: 125 MG, CYCLIC (1 CYCLE)
     Route: 048
     Dates: start: 20170915, end: 20171004
  7. FENTANYL. [Concomitant]
     Active Substance: FENTANYL
     Dosage: UNK
     Route: 062
  8. XGEVA [Concomitant]
     Active Substance: DENOSUMAB
     Dosage: 120 MG, UNK
     Route: 058
     Dates: start: 20171101
  9. PANTOZOL [Concomitant]
     Active Substance: PANTOPRAZOLE SODIUM
     Dosage: UNK
     Route: 048

REACTIONS (9)
  - Atypical pneumonia [Not Recovered/Not Resolved]
  - Neutropenia [Not Recovered/Not Resolved]
  - Anaemia [Not Recovered/Not Resolved]
  - Dyspnoea [Not Recovered/Not Resolved]
  - Lymphangiopathy [Not Recovered/Not Resolved]
  - Pneumonitis [Recovering/Resolving]
  - Infection [Unknown]
  - Pyrexia [Not Recovered/Not Resolved]
  - General physical health deterioration [Not Recovered/Not Resolved]

NARRATIVE: CASE EVENT DATE: 20171101
